FAERS Safety Report 10721975 (Version 3)
Quarter: 2015Q1

REPORT INFORMATION
  Report Type: Spontaneous
  Country: IT (occurrence: IT)
  Receive Date: 20150119
  Receipt Date: 20150318
  Transmission Date: 20150721
  Serious: Yes (Death, Life-Threatening, Hospitalization, Other)
  Sender: FDA-Public Use
  Company Number: IT-ELI_LILLY_AND_COMPANY-IT201501004526

PATIENT
  Age: 70 Year
  Sex: Male
  Weight: 48 kg

DRUGS (4)
  1. CISPLATIN. [Concomitant]
     Active Substance: CISPLATIN
     Dosage: 70 DF, CYCLICAL, D1 AND D8 EVERY 21 DAYS
     Route: 065
  2. PROCORALAN [Concomitant]
     Active Substance: IVABRADINE
     Dosage: 5 MG, BID
     Route: 048
  3. GEMZAR [Suspect]
     Active Substance: GEMCITABINE HYDROCHLORIDE
     Indication: BLADDER CANCER
     Dosage: 1500 MG, CYCLICAL, D1 AND D8 EVERY 21 DAYS
     Route: 042
     Dates: start: 20141124, end: 20141216
  4. PLASIL                             /00041902/ [Concomitant]
     Active Substance: METOCLOPRAMIDE HYDROCHLORIDE
     Dosage: 10 MG, UNKNOWN
     Route: 042
     Dates: start: 20141124, end: 20141216

REACTIONS (2)
  - Diverticular perforation [Fatal]
  - Malignant neoplasm progression [Unknown]

NARRATIVE: CASE EVENT DATE: 20141222
